FAERS Safety Report 7137285-7 (Version None)
Quarter: 2010Q4

REPORT INFORMATION
  Report Type: 
  Country: None (occurrence: None)
  Receive Date: 20101206
  Receipt Date: 20101123
  Transmission Date: 20110411
  Serious: No
  Sender: FDA-Public Use
  Company Number: PHHY2010NL79005

PATIENT
  Sex: Female

DRUGS (5)
  1. TASIGNA [Suspect]
     Dosage: 2DD 200 MG
     Route: 048
  2. TASIGNA [Suspect]
     Dosage: 1DD 200 MG
     Route: 048
  3. COLCHICINE [Concomitant]
  4. PREDNISONE [Concomitant]
     Dosage: 10 MG, UNK
  5. NEXIUM [Concomitant]
     Dosage: 20 MG, UNK

REACTIONS (2)
  - ABDOMINAL PAIN [None]
  - INCORRECT DOSE ADMINISTERED [None]
